FAERS Safety Report 13915577 (Version 1)
Quarter: 2017Q3

REPORT INFORMATION
  Report Type: Spontaneous
  Country: CN (occurrence: CN)
  Receive Date: 20170829
  Receipt Date: 20170829
  Transmission Date: 20171127
  Serious: Yes (Hospitalization)
  Sender: FDA-Public Use
  Company Number: CN-KRKA, D.D., NOVO MESTO-2025215

PATIENT
  Age: 74 Year
  Sex: Female
  Weight: 53 kg

DRUGS (5)
  1. THROMBIN [Concomitant]
     Active Substance: THROMBIN
     Route: 045
  2. LANSOPRAZOLE WORLD [Suspect]
     Active Substance: LANSOPRAZOLE
     Indication: PROPHYLAXIS AGAINST GASTROINTESTINAL ULCER
     Route: 041
     Dates: start: 20141101
  3. OMEPRAZOLE. [Suspect]
     Active Substance: OMEPRAZOLE
     Route: 045
     Dates: start: 20141028, end: 20141101
  4. ESOMEPRAZOLE [Suspect]
     Active Substance: ESOMEPRAZOLE
     Dates: start: 20141026, end: 20141028
  5. HEMOCOAGULASE AGKISTRODON [Concomitant]
     Route: 042

REACTIONS (3)
  - Gastrointestinal haemorrhage [Unknown]
  - Drug ineffective [Unknown]
  - Dermatitis exfoliative [Recovering/Resolving]
